FAERS Safety Report 10958350 (Version 2)
Quarter: 2015Q2

REPORT INFORMATION
  Report Type: Spontaneous
  Country: US (occurrence: US)
  Receive Date: 20150326
  Receipt Date: 20150420
  Transmission Date: 20150821
  Serious: Yes (Other)
  Sender: FDA-Public Use
  Company Number: US-GILEAD-2015-0144371

PATIENT
  Age: 59 Year
  Sex: Male

DRUGS (1)
  1. HARVONI [Suspect]
     Active Substance: LEDIPASVIR\SOFOSBUVIR
     Indication: HEPATITIS C
     Dosage: 1 DF, QD
     Route: 048
     Dates: start: 20150309

REACTIONS (6)
  - Constipation [Unknown]
  - Back pain [Unknown]
  - Dyspepsia [Unknown]
  - Lip swelling [Unknown]
  - Swelling face [Unknown]
  - Flatulence [Unknown]

NARRATIVE: CASE EVENT DATE: 20150319
